FAERS Safety Report 21387366 (Version 2)
Quarter: 2022Q4

REPORT INFORMATION
  Report Type: Spontaneous
  Country: JP (occurrence: JP)
  Receive Date: 20220928
  Receipt Date: 20221013
  Transmission Date: 20230112
  Serious: Yes (Death, Other)
  Sender: FDA-Public Use
  Company Number: JP-CELGENE-JPN-20210106098

PATIENT
  Age: 59 Year
  Sex: Female
  Weight: 63.8 kg

DRUGS (16)
  1. REVLIMID [Suspect]
     Active Substance: LENALIDOMIDE
     Indication: Plasma cell leukaemia
     Dosage: FREQUENCY TEXT: DAY 1-21?5 MILLIGRAM
     Route: 048
  2. REVLIMID [Suspect]
     Active Substance: LENALIDOMIDE
     Indication: Off label use
     Dosage: FREQUENCY TEXT: DAY 1-14?5 MILLIGRAM
     Route: 048
  3. DEXAMETHASONE [Suspect]
     Active Substance: DEXAMETHASONE
     Indication: Plasma cell leukaemia
     Dosage: FREQUENCY TEXT: UNKNOWN?38 MILLIGRAM
     Route: 048
  4. DEXAMETHASONE [Suspect]
     Active Substance: DEXAMETHASONE
     Dosage: FREQUENCY TEXT: DAY 1, 8, 15, 22
     Route: 048
  5. DEXAMETHASONE [Suspect]
     Active Substance: DEXAMETHASONE
     Dosage: FREQUENCY TEXT: DAY 1, 8, 15, 22
     Route: 048
  6. DEXAMETHASONE [Suspect]
     Active Substance: DEXAMETHASONE
     Dosage: FREQUENCY TEXT: DAY 1, 2, 8, 9, 15, 16, 22, 23
     Route: 048
  7. DARATUMUMAB [Concomitant]
     Active Substance: DARATUMUMAB
     Indication: Plasma cell leukaemia
     Dosage: FREQUENCY TEXT: DAY 1, 8, 15, 22
     Route: 065
  8. DARATUMUMAB [Concomitant]
     Active Substance: DARATUMUMAB
     Dosage: FREQUENCY TEXT: DAY 1, 15
     Route: 065
  9. DARATUMUMAB [Concomitant]
     Active Substance: DARATUMUMAB
     Dosage: FREQUENCY TEXT: DAY 1
     Route: 065
  10. CISPLATIN [Concomitant]
     Active Substance: CISPLATIN
     Indication: Gingival cancer
     Dosage: FREQUENCY TEXT: UNKNOWN
     Route: 065
  11. CISPLATIN [Concomitant]
     Active Substance: CISPLATIN
     Dosage: FREQUENCY TEXT: UNKNOWN
     Route: 065
  12. BORTEZOMIB [Concomitant]
     Active Substance: BORTEZOMIB
     Indication: Plasma cell leukaemia
     Dosage: FREQUENCY TEXT: DAY 1, 8, 15, 22
     Route: 065
  13. CYCLOPHOSPHAMIDE [Concomitant]
     Active Substance: CYCLOPHOSPHAMIDE
     Indication: Plasma cell leukaemia
     Dosage: FREQUENCY TEXT: DAY 1, 8, 15, 22
     Route: 065
  14. CARFILZOMIB [Concomitant]
     Active Substance: CARFILZOMIB
     Indication: Plasma cell leukaemia
     Dosage: FREQUENCY TEXT: DAY 1, 2
     Route: 065
  15. CARFILZOMIB [Concomitant]
     Active Substance: CARFILZOMIB
     Dosage: FREQUENCY TEXT: DAY 8, 9, 15, 16
     Route: 065
  16. CARFILZOMIB [Concomitant]
     Active Substance: CARFILZOMIB
     Dosage: FREQUENCY TEXT: DAY 1, 2, 8, 9, 15, 16
     Route: 065

REACTIONS (1)
  - Pancreatic carcinoma [Fatal]
